FAERS Safety Report 24909735 (Version 2)
Quarter: 2025Q1

REPORT INFORMATION
  Report Type: Report from Study
  Country: US (occurrence: US)
  Receive Date: 20250131
  Receipt Date: 20250302
  Transmission Date: 20250408
  Serious: No
  Sender: TEVA
  Company Number: US-TEVA-VS-3287243

PATIENT
  Age: 51 Year
  Sex: Female

DRUGS (2)
  1. AUSTEDO [Suspect]
     Active Substance: DEUTETRABENAZINE
     Indication: Tardive dyskinesia
     Route: 065
     Dates: start: 20201022
  2. AUSTEDO [Suspect]
     Active Substance: DEUTETRABENAZINE
     Indication: Tardive dyskinesia
     Route: 065
     Dates: start: 202409

REACTIONS (6)
  - Tremor [Unknown]
  - Product prescribing error [Unknown]
  - Drug ineffective [Unknown]
  - Stress [Not Recovered/Not Resolved]
  - Dyskinesia [Unknown]
  - Insomnia [Not Recovered/Not Resolved]
